FAERS Safety Report 9439632 (Version 1)
Quarter: 2013Q3

REPORT INFORMATION
  Report Type: Spontaneous
  Country: US (occurrence: US)
  Receive Date: 20130805
  Receipt Date: 20130805
  Transmission Date: 20140515
  Serious: No
  Sender: FDA-Public Use
  Company Number: US-PFIZER INC-2013182275

PATIENT
  Age: 48 Year
  Sex: Male
  Weight: 69 kg

DRUGS (3)
  1. LYRICA [Suspect]
     Indication: NEURALGIA
     Dosage: 30 MG, 2X/DAY
     Route: 048
     Dates: start: 2006, end: 2013
  2. IBUPROFEN [Suspect]
     Indication: ARTHRALGIA
     Dosage: 600 MG, 3X/DAY
     Route: 048
     Dates: start: 2013
  3. CYMBALTA [Concomitant]
     Indication: DEPRESSION
     Dosage: UNK

REACTIONS (2)
  - Arthralgia [Unknown]
  - Drug ineffective [Unknown]
